FAERS Safety Report 21452813 (Version 2)
Quarter: 2022Q4

REPORT INFORMATION
  Report Type: Spontaneous
  Country: BR (occurrence: None)
  Receive Date: 20221013
  Receipt Date: 20221020
  Transmission Date: 20230112
  Serious: Yes (Hospitalization, Other)
  Sender: FDA-Public Use
  Company Number: BR-ROCHE-3195569

PATIENT
  Age: 28 Year
  Sex: Female

DRUGS (1)
  1. TAMIFLU [Suspect]
     Active Substance: OSELTAMIVIR PHOSPHATE
     Indication: Influenza
     Route: 065
     Dates: start: 202208

REACTIONS (41)
  - Henoch-Schonlein purpura [Recovered/Resolved]
  - Heart rate increased [Unknown]
  - Pruritus [Unknown]
  - Dermatitis bullous [Unknown]
  - Erythema multiforme [Unknown]
  - Erythema multiforme [Unknown]
  - Loss of consciousness [Unknown]
  - Nausea [Unknown]
  - Myalgia [Unknown]
  - Oedema peripheral [Unknown]
  - Limb injury [Unknown]
  - Pain [Unknown]
  - Pain in extremity [Unknown]
  - Asthenia [Unknown]
  - Somnolence [Unknown]
  - Abdominal pain upper [Unknown]
  - Gait disturbance [Unknown]
  - Bedridden [Unknown]
  - Petechiae [Unknown]
  - Arthralgia [Unknown]
  - Pain in extremity [Unknown]
  - Vomiting [Unknown]
  - Oedema peripheral [Unknown]
  - Constipation [Unknown]
  - Petechiae [Unknown]
  - Oedema peripheral [Unknown]
  - Ill-defined disorder [Unknown]
  - Peripheral swelling [Unknown]
  - Erythema [Unknown]
  - Peripheral swelling [Unknown]
  - Abdominal pain [Unknown]
  - Gallbladder disorder [Unknown]
  - Leukocytosis [Unknown]
  - Body temperature decreased [Unknown]
  - Arthralgia [Unknown]
  - Abdominal pain upper [Unknown]
  - Thrombocytopenia [Unknown]
  - Diarrhoea [Unknown]
  - Chest pain [Unknown]
  - Oedema peripheral [Unknown]
  - Panic reaction [Unknown]
